FAERS Safety Report 12555556 (Version 1)
Quarter: 2016Q3

REPORT INFORMATION
  Report Type: Report from Study
  Country: FR (occurrence: FR)
  Receive Date: 20160714
  Receipt Date: 20160714
  Transmission Date: 20161109
  Serious: Yes (Hospitalization, Other)
  Sender: FDA-Public Use
  Company Number: FR-ROCHE-1789089

PATIENT

DRUGS (3)
  1. RITUXIMAB [Suspect]
     Active Substance: RITUXIMAB
     Indication: RHEUMATOID ARTHRITIS
     Route: 065
  2. TOCILIZUMAB [Suspect]
     Active Substance: TOCILIZUMAB
     Indication: RHEUMATOID ARTHRITIS
     Route: 042
  3. TOCILIZUMAB [Suspect]
     Active Substance: TOCILIZUMAB
     Route: 042

REACTIONS (20)
  - Colon cancer [Unknown]
  - Skin cancer [Unknown]
  - Sinusitis [Unknown]
  - Neutropenia [Unknown]
  - Ear infection [Unknown]
  - Skin infection [Unknown]
  - Bronchitis [Unknown]
  - Hypersensitivity [Unknown]
  - Urinary tract infection [Unknown]
  - Thrombocytopenia [Unknown]
  - Pneumonia [Unknown]
  - Laryngitis [Unknown]
  - Pharyngitis [Unknown]
  - Infection [Unknown]
  - Dysentery [Unknown]
  - Gastrointestinal infection [Unknown]
  - Hepatocellular injury [Unknown]
  - Pancreatitis [Unknown]
  - Gastroenteritis [Unknown]
  - Treatment failure [Unknown]
